FAERS Safety Report 24190584 (Version 1)
Quarter: 2024Q3

REPORT INFORMATION
  Report Type: Spontaneous
  Country: LK (occurrence: LK)
  Receive Date: 20240808
  Receipt Date: 20240808
  Transmission Date: 20241016
  Serious: Yes (Other)
  Sender: NOVARTIS
  Company Number: LK-002147023-NVSC2016LK016552

PATIENT

DRUGS (4)
  1. SIMULECT [Suspect]
     Active Substance: BASILIXIMAB
     Indication: Therapeutic procedure
     Dosage: UNK (0 DAY, 4TH DAY)
     Route: 042
  2. PREDNISOLONE [Suspect]
     Active Substance: PREDNISOLONE
     Indication: Product used for unknown indication
     Dosage: UNK
     Route: 065
  3. MYCOPHENOLATE MOFETIL [Suspect]
     Active Substance: MYCOPHENOLATE MOFETIL
     Indication: Product used for unknown indication
     Dosage: UNK
     Route: 048
  4. TACROLIMUS [Suspect]
     Active Substance: TACROLIMUS
     Indication: Product used for unknown indication
     Dosage: UNK
     Route: 048

REACTIONS (1)
  - Kidney transplant rejection [Not Recovered/Not Resolved]

NARRATIVE: CASE EVENT DATE: 20160923
